FAERS Safety Report 23498466 (Version 1)
Quarter: 2024Q1

REPORT INFORMATION
  Report Type: Spontaneous
  Country: US (occurrence: None)
  Receive Date: 20240207
  Receipt Date: 20240207
  Transmission Date: 20240410
  Serious: No
  Sender: FDA-Public Use
  Company Number: US-ROCHE-3441684

PATIENT
  Age: 35 Year
  Sex: Female

DRUGS (1)
  1. XOLAIR [Suspect]
     Active Substance: OMALIZUMAB
     Indication: Chronic spontaneous urticaria
     Dosage: LAST DOSE WAS ON /OCT/2023
     Route: 065
     Dates: start: 202309

REACTIONS (2)
  - Rash [Recovered/Resolved]
  - Skin hyperpigmentation [Unknown]

NARRATIVE: CASE EVENT DATE: 20231001
